FAERS Safety Report 16285924 (Version 1)
Quarter: 2019Q2

REPORT INFORMATION
  Report Type: Spontaneous
  Country: US (occurrence: US)
  Receive Date: 20190508
  Receipt Date: 20190508
  Transmission Date: 20190711
  Serious: No
  Sender: FDA-Public Use
  Company Number: US-FDC LIMITED-2019RIS00212

PATIENT
  Sex: Female

DRUGS (2)
  1. PLAVIX [Concomitant]
     Active Substance: CLOPIDOGREL BISULFATE
  2. TIMOLOL MALEATE. [Suspect]
     Active Substance: TIMOLOL MALEATE
     Dosage: UNK

REACTIONS (5)
  - Nervousness [Not Recovered/Not Resolved]
  - Dysuria [Not Recovered/Not Resolved]
  - Paraesthesia [Not Recovered/Not Resolved]
  - Renal disorder [Not Recovered/Not Resolved]
  - Insomnia [Not Recovered/Not Resolved]
